FAERS Safety Report 14924352 (Version 1)
Quarter: 2018Q2

REPORT INFORMATION
  Report Type: Report from Study
  Country: US (occurrence: US)
  Receive Date: 20180522
  Receipt Date: 20180522
  Transmission Date: 20180711
  Serious: No
  Sender: FDA-Public Use
  Company Number: US-ARALEZ PHARMACEUTICALS R+D INC.-2018-ARA-001230

PATIENT
  Sex: Male

DRUGS (13)
  1. METOPROLOL SUCCINATE. [Suspect]
     Active Substance: METOPROLOL SUCCINATE
     Indication: PRODUCT USED FOR UNKNOWN INDICATION
     Route: 065
  2. ALEVE [Concomitant]
     Active Substance: NAPROXEN SODIUM
  3. AMIODARONE [Concomitant]
     Active Substance: AMIODARONE
  4. MEGACE [Concomitant]
     Active Substance: MEGESTROL ACETATE
  5. TAGRISSO [Suspect]
     Active Substance: OSIMERTINIB
     Indication: CHRONIC KIDNEY DISEASE
     Dosage: 80 MG, QD
     Route: 048
     Dates: start: 20180503
  6. PANTOPRAZOLE SODIUM. [Concomitant]
     Active Substance: PANTOPRAZOLE SODIUM
  7. DOXYCYCLINE. [Concomitant]
     Active Substance: DOXYCYCLINE
  8. SUCRALFATE. [Concomitant]
     Active Substance: SUCRALFATE
  9. EUCERIN                            /00481901/ [Concomitant]
  10. ONDANSETRON [Concomitant]
     Active Substance: ONDANSETRON
  11. MIRTAZAPINE. [Concomitant]
     Active Substance: MIRTAZAPINE
  12. CENTRUM SILVER                     /02363801/ [Concomitant]
     Active Substance: MINERALS\VITAMINS
  13. SARNA                              /01326901/ [Concomitant]

REACTIONS (2)
  - Dizziness [Not Recovered/Not Resolved]
  - Decreased appetite [Not Recovered/Not Resolved]
